FAERS Safety Report 8126035-3 (Version None)
Quarter: 2012Q1

REPORT INFORMATION
  Report Type: 
  Country: None (occurrence: None)
  Receive Date: 20120209
  Receipt Date: 20120201
  Transmission Date: 20120608
  Serious: Yes (Hospitalization)
  Sender: FDA-Public Use
  Company Number: US-CELGENEUS-163-21880-12012864

PATIENT
  Age: 81 Year
  Sex: Male

DRUGS (15)
  1. NORCO [Concomitant]
     Route: 065
  2. FUROSEMIDE [Concomitant]
     Route: 065
  3. TERAZOSIN HCL [Concomitant]
     Route: 065
  4. REVLIMID [Suspect]
     Indication: MULTIPLE MYELOMA
     Dosage: 25 MILLIGRAM
     Route: 048
     Dates: start: 20111229, end: 20120109
  5. ASPIRIN [Concomitant]
     Route: 065
  6. FLUTICASONE PROPIONATE [Concomitant]
     Route: 065
  7. DECADRON [Concomitant]
     Indication: MULTIPLE MYELOMA
     Route: 065
     Dates: start: 20111201
  8. TEMAZEPAM [Concomitant]
     Route: 065
  9. POLYETHYLENE GLYCOL [Concomitant]
     Route: 065
  10. DEXAMETHASONE [Concomitant]
     Route: 065
  11. MAGNESIUM OXIDE [Concomitant]
     Route: 065
  12. LEVOTHYROXINE SODIUM [Concomitant]
     Route: 065
  13. COMBIVENT [Concomitant]
     Route: 055
  14. TRAZODONE HCL [Concomitant]
     Route: 065
  15. MORPHINE [Concomitant]
     Route: 065

REACTIONS (2)
  - DEPRESSED LEVEL OF CONSCIOUSNESS [None]
  - PNEUMONIA ASPIRATION [None]
